FAERS Safety Report 6718216-8 (Version None)
Quarter: 2010Q2

REPORT INFORMATION
  Report Type: 
  Country: None (occurrence: None)
  Receive Date: 20100510
  Receipt Date: 20100427
  Transmission Date: 20101027
  Serious: Yes (Hospitalization, Other)
  Sender: FDA-Public Use
  Company Number: JP-PFIZER INC-2010041579

PATIENT
  Age: 40 Year
  Sex: Female

DRUGS (5)
  1. CELECOX [Suspect]
     Indication: RHEUMATOID ARTHRITIS
     Dosage: 200 MG, 2X/DAY
     Route: 048
     Dates: start: 20100204, end: 20100305
  2. AZULFIDINE - SLOW RELEASE [Concomitant]
     Dosage: UNK
     Route: 048
     Dates: start: 20100214, end: 20100305
  3. RINDERON [Concomitant]
     Dosage: UNK
     Dates: start: 20100204, end: 20100204
  4. CIMETIDINE [Concomitant]
     Dosage: UNK
     Dates: start: 20100204
  5. XYLOCAINE [Concomitant]

REACTIONS (4)
  - DRUG ERUPTION [None]
  - LOCAL SWELLING [None]
  - LYMPHOCYTE COUNT DECREASED [None]
  - WHITE BLOOD CELL COUNT DECREASED [None]
